FAERS Safety Report 15067774 (Version 1)
Quarter: 2018Q2

REPORT INFORMATION
  Report Type: Spontaneous
  Country: US (occurrence: US)
  Receive Date: 20180626
  Receipt Date: 20180626
  Transmission Date: 20180711
  Serious: Yes (Other)
  Sender: FDA-Public Use
  Company Number: US-ALLERGAN-1832273US

PATIENT
  Age: 79 Year
  Sex: Female

DRUGS (2)
  1. REFRESH PLUS [Suspect]
     Active Substance: CARBOXYMETHYLCELLULOSE SODIUM
     Indication: DRY EYE
     Dosage: 1 VIAL, QID
     Route: 047
  2. REFRESH PLUS [Suspect]
     Active Substance: CARBOXYMETHYLCELLULOSE SODIUM
     Dosage: 1 VIAL, QID
     Route: 047

REACTIONS (4)
  - Product packaging issue [Unknown]
  - Eye irritation [Not Recovered/Not Resolved]
  - Retinal disorder [Recovered/Resolved]
  - Glaucoma [Not Recovered/Not Resolved]
